FAERS Safety Report 15327319 (Version 2)
Quarter: 2018Q4

REPORT INFORMATION
  Report Type: Not Available
  Country: US (occurrence: US)
  Receive Date: 20180828
  Receipt Date: 20181220
  Transmission Date: 20190204
  Serious: No
  Sender: FDA-Public Use
  Company Number: US-NEUROCRINE BIOSCIENCES INC.-2018NBI02483

PATIENT
  Sex: Male

DRUGS (2)
  1. INGREZZA [Suspect]
     Active Substance: VALBENAZINE
     Indication: TARDIVE DYSKINESIA
     Route: 048
     Dates: start: 20180112, end: 20180714
  2. INGREZZA [Suspect]
     Active Substance: VALBENAZINE
     Route: 048
     Dates: start: 201808, end: 20181207

REACTIONS (3)
  - Asthenia [Unknown]
  - Dizziness [Unknown]
  - Hypophagia [Unknown]

NARRATIVE: CASE EVENT DATE: 2018
